FAERS Safety Report 13316559 (Version 3)
Quarter: 2021Q1

REPORT INFORMATION
  Report Type: Report from Study
  Country: AT (occurrence: AT)
  Receive Date: 20170310
  Receipt Date: 20210319
  Transmission Date: 20210419
  Serious: Yes (Hospitalization)
  Sender: FDA-Public Use
  Company Number: AT-SHIRE-AT201705334

PATIENT
  Age: 34 Year
  Sex: Male
  Weight: 95.2 kg

DRUGS (1)
  1. IDURSULFASE [Suspect]
     Active Substance: IDURSULFASE
     Indication: MUCOPOLYSACCHARIDOSIS II
     Dosage: 0.5 MILLIGRAM/KILOGRAM, Q2WEEKS
     Route: 041
     Dates: start: 20070622

REACTIONS (3)
  - Nasopharyngitis [Recovered/Resolved]
  - Folate deficiency [Recovering/Resolving]
  - Carpal tunnel syndrome [Recovered/Resolved]

NARRATIVE: CASE EVENT DATE: 20160209
